FAERS Safety Report 16534478 (Version 1)
Quarter: 2019Q3

REPORT INFORMATION
  Report Type: Spontaneous
  Country: US (occurrence: US)
  Receive Date: 20190704
  Receipt Date: 20190704
  Transmission Date: 20191004
  Serious: Yes (Life-Threatening, Hospitalization, Disabling, Other)
  Sender: FDA-Public Use
  Company Number: None

PATIENT
  Age: 58 Year
  Sex: Female

DRUGS (6)
  1. STELAZINE [Suspect]
     Active Substance: TRIFLUOPERAZINE HYDROCHLORIDE
  2. LITHIUM. [Suspect]
     Active Substance: LITHIUM
  3. ZYPREXA [Suspect]
     Active Substance: OLANZAPINE
     Indication: BIPOLAR DISORDER
  4. GEODON [Suspect]
     Active Substance: ZIPRASIDONE HYDROCHLORIDE\ZIPRASIDONE MESYLATE
     Indication: BIPOLAR DISORDER
     Dates: start: 20070601, end: 20100801
  5. THORAZINE [Suspect]
     Active Substance: CHLORPROMAZINE
  6. HALOPERIDOL. [Suspect]
     Active Substance: HALOPERIDOL

REACTIONS (23)
  - Drug withdrawal syndrome [None]
  - Aphasia [None]
  - Gait disturbance [None]
  - Delusion [None]
  - Memory impairment [None]
  - Feeling abnormal [None]
  - Feeling of despair [None]
  - Balance disorder [None]
  - Restlessness [None]
  - Sleep disorder [None]
  - Compulsive shopping [None]
  - Movement disorder [None]
  - Somnolence [None]
  - Vomiting [None]
  - Catatonia [None]
  - Restless legs syndrome [None]
  - Anxiety [None]
  - Irritability [None]
  - Tremor [None]
  - Communication disorder [None]
  - Nausea [None]
  - Euphoric mood [None]
  - Disturbance in attention [None]

NARRATIVE: CASE EVENT DATE: 19880501
